FAERS Safety Report 5782308-0 (Version None)
Quarter: 2008Q2

REPORT INFORMATION
  Report Type: 
  Country: None (occurrence: None)
  Receive Date: 20080623
  Receipt Date: 20080620
  Transmission Date: 20081010
  Serious: Yes (Life-Threatening, Hospitalization)
  Sender: FDA-Public Use
  Company Number: JP-BOEHRINGER INGELHEIM GMBH, GERMANY-2008-BP-05539NB

PATIENT
  Age: 76 Year
  Sex: Male

DRUGS (9)
  1. PRAMIPEXOLE DIHYDROCHLORIDE [Suspect]
     Indication: PARKINSON'S DISEASE
     Route: 048
     Dates: start: 20060321, end: 20080330
  2. CARBIDOPA AND LEVODOPA [Concomitant]
     Indication: PARKINSON'S DISEASE
     Route: 065
  3. PANVITAN [Concomitant]
     Indication: GASTRIC ULCER
     Route: 048
     Dates: start: 20031001
  4. MUCODYNE [Concomitant]
     Indication: GASTRIC ULCER
     Route: 048
     Dates: start: 20080131
  5. EXCELASE [Concomitant]
     Indication: GASTRIC ULCER
     Route: 048
     Dates: start: 20010507, end: 20080405
  6. SELBEX [Concomitant]
     Indication: GASTRIC ULCER
     Route: 048
     Dates: start: 20031120, end: 20080405
  7. LANSOPRAZOLE [Concomitant]
     Indication: GASTRIC ULCER
     Route: 048
     Dates: start: 20070531, end: 20080405
  8. MAGMITT [Concomitant]
     Indication: CONSTIPATION
     Route: 048
     Dates: start: 20070607, end: 20080405
  9. LEVOFLOXACIN [Concomitant]
     Indication: CYSTITIS
     Route: 031

REACTIONS (1)
  - PNEUMONIA ASPIRATION [None]
